FAERS Safety Report 8398467-X (Version None)
Quarter: 2012Q2

REPORT INFORMATION
  Report Type: 
  Country: None (occurrence: None)
  Receive Date: 20120531
  Receipt Date: 20120522
  Transmission Date: 20120825
  Serious: No
  Sender: FDA-Public Use
  Company Number: US-ASTRAZENECA-2011SE39323

PATIENT
  Age: 26 Year
  Sex: Male

DRUGS (3)
  1. SEROQUEL XR [Suspect]
     Indication: BIPOLAR DISORDER
     Route: 048
     Dates: start: 20110501, end: 20110601
  2. CALCIUM CARBONATE [Concomitant]
  3. NEXIUM [Suspect]
     Route: 048

REACTIONS (6)
  - DYSPEPSIA [None]
  - INTENTIONAL DRUG MISUSE [None]
  - REGURGITATION [None]
  - AGITATION [None]
  - MENTAL IMPAIRMENT [None]
  - ANGER [None]
